FAERS Safety Report 6127921-6 (Version None)
Quarter: 2009Q1

REPORT INFORMATION
  Report Type: 
  Country: None (occurrence: None)
  Receive Date: 20090319
  Receipt Date: 20090304
  Transmission Date: 20090719
  Serious: Yes (Hospitalization)
  Sender: FDA-Public Use
  Company Number: 2009S1003913

PATIENT
  Age: 59 Year
  Sex: Male

DRUGS (8)
  1. AMIODARONE (AMIODARONE) [Suspect]
     Indication: ATRIAL FIBRILLATION
     Dosage: 600 MG;DAILY ; 400 MG;DAILY
     Dates: start: 20080510, end: 20080520
  2. AMIODARONE (AMIODARONE) [Suspect]
     Indication: ATRIAL FIBRILLATION
     Dosage: 600 MG;DAILY ; 400 MG;DAILY
     Dates: start: 20080520, end: 20080610
  3. ALDACTONE [Concomitant]
  4. ALLOPURINOL [Concomitant]
  5. BISOPROLOL [Concomitant]
  6. MARCUMAR [Concomitant]
  7. RAMIPLUS AL [Concomitant]
  8. TORSEMIDE [Concomitant]

REACTIONS (1)
  - OPTIC ATROPHY [None]
